FAERS Safety Report 18892722 (Version 2)
Quarter: 2021Q1

REPORT INFORMATION
  Report Type: Spontaneous
  Country: MX (occurrence: MX)
  Receive Date: 20210215
  Receipt Date: 20210224
  Transmission Date: 20210420
  Serious: Yes (Other)
  Sender: FDA-Public Use
  Company Number: MX-BEH-2021128395

PATIENT
  Age: 14 Year
  Sex: Male
  Weight: 62 kg

DRUGS (3)
  1. CLUVOT [Suspect]
     Active Substance: FACTOR XIII CONCENTRATE (HUMAN)
     Indication: PROPHYLAXIS
     Dosage: 30 IU/KG BI?MONTHLY
     Route: 042
     Dates: start: 201801
  2. LUTEIN;VITAMINS NOS [Concomitant]
     Indication: PRODUCT USED FOR UNKNOWN INDICATION
     Dosage: 1 DOSAGE FORM, QD
     Route: 065
     Dates: start: 202010
  3. CLUVOT [Suspect]
     Active Substance: FACTOR XIII CONCENTRATE (HUMAN)
     Indication: FACTOR XIII DEFICIENCY
     Dosage: 2500 INTERNATIONAL UNIT EVERY 2 MONTHS
     Route: 042
     Dates: start: 20201214

REACTIONS (2)
  - Hyperbilirubinaemia [Not Recovered/Not Resolved]
  - Jaundice [Not Recovered/Not Resolved]

NARRATIVE: CASE EVENT DATE: 20201214
